FAERS Safety Report 21928653 (Version 2)
Quarter: 2023Q2

REPORT INFORMATION
  Report Type: Report from Study
  Country: US (occurrence: US)
  Receive Date: 20230130
  Receipt Date: 20230417
  Transmission Date: 20230721
  Serious: Yes (Death, Hospitalization, Other)
  Sender: FDA-Public Use
  Company Number: US-ACADIA PHARMACEUTICALS INC.-ACA-2023-PIM-000266

PATIENT
  Sex: Male
  Weight: 82 kg

DRUGS (24)
  1. NUPLAZID [Suspect]
     Active Substance: PIMAVANSERIN TARTRATE
     Indication: Parkinson^s disease
     Dosage: 34 MILLIGRAM, QD
     Route: 048
     Dates: start: 20221116
  2. NUPLAZID [Suspect]
     Active Substance: PIMAVANSERIN TARTRATE
     Indication: Hallucination
  3. NUPLAZID [Suspect]
     Active Substance: PIMAVANSERIN TARTRATE
     Indication: Delusion
  4. STALEVO [Concomitant]
     Active Substance: CARBIDOPA\ENTACAPONE\LEVODOPA
     Dosage: 1 TABLET, 4 TIMES DAILY (50-200-200 MG PER TABLET)
     Dates: start: 20220815
  5. CELEBREX [Concomitant]
     Active Substance: CELECOXIB
     Dosage: 200 MILLIGRAM, BID
     Route: 048
     Dates: start: 20220106, end: 20221222
  6. CONSTULOSE [Concomitant]
     Active Substance: LACTULOSE
     Dosage: 30 MILLILITER, BID (10 GM/15 ML) FOR 1 MONTH
     Route: 048
     Dates: start: 20220727
  7. FLEXERIL [Concomitant]
     Active Substance: CYCLOBENZAPRINE HYDROCHLORIDE
     Indication: Muscle spasms
     Dosage: 5 MILLIGRAM, BID (AS NEEDED)
     Route: 048
  8. NEURONTIN [Concomitant]
     Active Substance: GABAPENTIN
     Dosage: 300 MILLIGRAM, TID
     Route: 048
     Dates: end: 20221222
  9. NORCO [Concomitant]
     Active Substance: ACETAMINOPHEN\HYDROCODONE BITARTRATE
     Indication: Pain
     Dosage: 1 TABLET, EVERY 6 HRS (10-325 MG, AS NEEDED)
     Route: 048
     Dates: start: 20221012, end: 20221222
  10. LIDODERM [Concomitant]
     Active Substance: LIDOCAINE
     Dosage: 1 PATCH ON SKIN DAILY (5 PERCENT, REMOVE AND DISCARD PATCH WITHIN 12 HOURS OR AS DIRECTED BY MD)
     Route: 061
     Dates: start: 20220505, end: 20230113
  11. LINZESS [Concomitant]
     Active Substance: LINACLOTIDE
     Dosage: 72 MICROGRAM, QD (EVERY MORNING BEFORE BREAKFAST)
     Route: 048
     Dates: start: 20220422
  12. ATIVAN [Concomitant]
     Active Substance: LORAZEPAM
     Dosage: 0.5 MILLIGRAM, QD
     Route: 048
     Dates: end: 20221222
  13. PHENERGAN [Concomitant]
     Active Substance: PROMETHAZINE HYDROCHLORIDE
     Dosage: 25 MILLIGRAM, BID (PRN)
     Route: 048
     Dates: start: 20220801
  14. PERI-COLACE [DOCUSATE SODIUM;SENNOSIDE A+B] [Concomitant]
     Dosage: 1 TABLET, QD (8.6-50 MG)
     Route: 048
     Dates: start: 20220320, end: 20221222
  15. PEPCID [Concomitant]
     Active Substance: FAMOTIDINE
     Dosage: 20 MILLIGRAM, QD
     Route: 048
     Dates: start: 20220331, end: 20221130
  16. AMARYL [Concomitant]
     Active Substance: GLIMEPIRIDE
     Dosage: 2 MILLIGRAM, QD (WITH BREAKFAST)
     Route: 048
     Dates: start: 20220401, end: 20221222
  17. NAMENDA [Concomitant]
     Active Substance: MEMANTINE HYDROCHLORIDE
     Indication: Dementia
     Dosage: 5 MILLIGRAM, QD (1 TABLET IN PM)
     Route: 048
     Dates: start: 20221116
  18. NAMENDA [Concomitant]
     Active Substance: MEMANTINE HYDROCHLORIDE
     Indication: Parkinson^s disease
  19. DESYREL [Concomitant]
     Active Substance: TRAZODONE HYDROCHLORIDE
     Dosage: 2 TABLET, QD (50 MG, AT BEDTIME)
     Route: 048
     Dates: start: 20220911, end: 20221222
  20. VITAMIN D3 [Concomitant]
     Active Substance: CHOLECALCIFEROL
     Dosage: 25 MICROGRAM, QD (1 TABLET-1000 UT)
     Route: 048
  21. CYMBALTA [Concomitant]
     Active Substance: DULOXETINE HYDROCHLORIDE
     Dosage: 60 MILLIGRAM, QD (DR)
     Route: 048
  22. PRAVACHOL [Concomitant]
     Active Substance: PRAVASTATIN SODIUM
     Dosage: 80 MILLIGRAM, QD (AT BEDTIME)
     Route: 048
  23. SEROQUEL [Concomitant]
     Active Substance: QUETIAPINE FUMARATE
     Dosage: 100 MILLIGRAM, QD (AT BEDTIME)
     Route: 048
  24. FLOMAX [Concomitant]
     Active Substance: TAMSULOSIN HYDROCHLORIDE
     Dosage: 0.4 MILLIGRAM, BID
     Route: 048

REACTIONS (1)
  - Death [Fatal]
